FAERS Safety Report 8153006-3 (Version None)
Quarter: 2012Q1

REPORT INFORMATION
  Report Type: 
  Country: None (occurrence: None)
  Receive Date: 20120221
  Receipt Date: 20120215
  Transmission Date: 20120608
  Serious: Yes (Hospitalization, Other)
  Sender: FDA-Public Use
  Company Number: US-PFIZER INC-2010007245

PATIENT
  Sex: Male

DRUGS (5)
  1. DILANTIN [Suspect]
     Dosage: 100 MG, 2X/DAY
     Route: 048
     Dates: start: 20080701, end: 20080721
  2. DILANTIN [Suspect]
     Indication: CONVULSION
     Dosage: 100 MG, 3X/DAY
     Route: 048
     Dates: start: 20080401, end: 20080701
  3. ACETAMINOPHEN AND HYDROCODONE BITARTRATE [Concomitant]
     Dosage: UNK
     Dates: start: 20080716
  4. CEFADROXIL [Concomitant]
     Dosage: 500 MG, UNK
     Dates: start: 20080716
  5. AZITHROMYCIN [Concomitant]
     Dosage: 500 MG, UNK
     Dates: start: 20080710

REACTIONS (1)
  - STEVENS-JOHNSON SYNDROME [None]
